FAERS Safety Report 25099056 (Version 1)
Quarter: 2025Q1

REPORT INFORMATION
  Report Type: Report from Study
  Country: US (occurrence: US)
  Receive Date: 20250320
  Receipt Date: 20250320
  Transmission Date: 20250409
  Serious: Yes (Hospitalization, Other)
  Sender: GILEAD
  Company Number: US-GILEAD-2025-0707947

PATIENT
  Age: 90 Year
  Sex: Female

DRUGS (1)
  1. AZTREONAM LYSINE [Suspect]
     Active Substance: AZTREONAM LYSINE
     Indication: Product used for unknown indication
     Dosage: 75 MG, TID, VIA NEBULIZER FOR 28 DAYS ON, 28 DAYS OF
     Route: 055
     Dates: start: 20241011

REACTIONS (1)
  - Diverticulitis [Unknown]
